FAERS Safety Report 8478758-4 (Version None)
Quarter: 2012Q2

REPORT INFORMATION
  Report Type: 
  Country: None (occurrence: None)
  Receive Date: 20120629
  Receipt Date: 20120628
  Transmission Date: 20120825
  Serious: Yes (Death)
  Sender: FDA-Public Use
  Company Number: US-ABBOTT-12P-163-0951070-00

PATIENT
  Sex: Female

DRUGS (4)
  1. TRUVADA [Concomitant]
     Indication: PRODUCT USED FOR UNKNOWN INDICATION
  2. NORVIR [Suspect]
     Indication: PRODUCT USED FOR UNKNOWN INDICATION
     Route: 048
  3. REYATAZ [Concomitant]
     Indication: PRODUCT USED FOR UNKNOWN INDICATION
  4. ZIAGEN [Concomitant]
     Indication: PRODUCT USED FOR UNKNOWN INDICATION

REACTIONS (1)
  - DEATH [None]
